FAERS Safety Report 9290196 (Version 1)
Quarter: 2013Q2

REPORT INFORMATION
  Report Type: Spontaneous
  Country: US (occurrence: US)
  Receive Date: 20130515
  Receipt Date: 20130515
  Transmission Date: 20140414
  Serious: Yes (Hospitalization, Other)
  Sender: FDA-Public Use
  Company Number: US-PFIZER INC-2013146374

PATIENT
  Age: 63 Year
  Sex: Female
  Weight: 102 kg

DRUGS (2)
  1. REVATIO [Suspect]
     Indication: PULMONARY HYPERTENSION
     Dosage: 20 MG, 3X/DAY
  2. TRACLEER [Concomitant]
     Indication: PULMONARY HYPERTENSION
     Dosage: 125 MG, 2X/DAY

REACTIONS (4)
  - Pneumonia [Recovering/Resolving]
  - Hypertension [Unknown]
  - Pyrexia [Unknown]
  - Blood glucose decreased [Unknown]
